FAERS Safety Report 9082106 (Version 1)
Quarter: 2013Q1

REPORT INFORMATION
  Report Type: Report from Study
  Country: US (occurrence: US)
  Receive Date: 20130130
  Receipt Date: 20130130
  Transmission Date: 20140127
  Serious: Yes (Hospitalization)
  Sender: FDA-Public Use
  Company Number: PHHO2012US009741

PATIENT
  Age: 53 Year
  Sex: Male
  Weight: 68.2 kg

DRUGS (33)
  1. BLINDED AFINITOR [Suspect]
     Indication: SQUAMOUS CELL CARCINOMA
     Dosage: UNK
     Route: 048
     Dates: start: 20120603
  2. BLINDED NO TREATMENT RECEIVED [Suspect]
     Indication: SQUAMOUS CELL CARCINOMA
     Dosage: UNK
     Route: 048
     Dates: start: 20120603
  3. BLINDED PLACEBO [Suspect]
     Indication: SQUAMOUS CELL CARCINOMA
     Dosage: UNK
     Route: 048
     Dates: start: 20120603
  4. FLUOROURACIL [Suspect]
     Dosage: 1200 MG EVERY 24 HOURSX5 DAYS
     Route: 042
     Dates: start: 20120603
  5. TAXOL [Suspect]
     Indication: SQUAMOUS CELL CARCINOMA
     Dosage: 198 MG, QD EVERY 2 WEEKS
     Route: 042
     Dates: start: 20120603
  6. HYDROXYUREA [Suspect]
     Indication: SQUAMOUS CELL CARCINOMA
     Dosage: 500 MG, BID
     Route: 048
     Dates: start: 20120603
  7. NEXIUM [Concomitant]
  8. MAGIC MOUTHWASH [Concomitant]
  9. DIFLUCAN [Concomitant]
  10. EUCERIN [Concomitant]
  11. LEVAQUIN [Concomitant]
  12. AQUAPHOR [Concomitant]
  13. NEOSPORIN [Concomitant]
  14. ZOFRAN [Concomitant]
  15. OXYCONTIN [Concomitant]
  16. COMPAZINE [Concomitant]
  17. PERI-COLACE [Concomitant]
  18. HYDROMORPHONE [Concomitant]
  19. FENTANYL [Concomitant]
  20. SENNA-S (DOCUSATE SODIUM/SENNA ALEXANDRINA) [Concomitant]
  21. COLECALCIFEROL [Concomitant]
  22. DILTIAZEM [Concomitant]
  23. GUAIFENESIN [Concomitant]
  24. LIDOCAINE VISCOUS [Concomitant]
  25. MULTIVITAMINS [Concomitant]
  26. ONDANSETRON [Concomitant]
  27. MIRALAX [Concomitant]
  28. ENOXAPARIN [Concomitant]
  29. FLUCONAZOLE [Concomitant]
  30. LIDOCAINE [Concomitant]
  31. VITAMIN D3 [Concomitant]
  32. DILAUDID [Concomitant]
  33. TESSALON [Concomitant]

REACTIONS (3)
  - Febrile neutropenia [Unknown]
  - Pneumonia aspiration [Unknown]
  - Dehydration [Unknown]
